FAERS Safety Report 9699313 (Version 2)
Quarter: 2013Q4

REPORT INFORMATION
  Report Type: Spontaneous
  Country: US (occurrence: US)
  Receive Date: 20131120
  Receipt Date: 20131120
  Transmission Date: 20140711
  Serious: No
  Sender: FDA-Public Use
  Company Number: US-GILEAD-2008-0015221

PATIENT
  Age: 66 Year
  Sex: Female

DRUGS (6)
  1. LETAIRIS [Suspect]
     Indication: PULMONARY ARTERIAL HYPERTENSION
     Dates: start: 20070907, end: 20071213
  2. SYNTHROID [Concomitant]
  3. OS-CAL [Concomitant]
  4. MULTIVITAMIN [Concomitant]
  5. DILTIAZEM [Concomitant]
     Dates: start: 2006
  6. OXYGEN [Concomitant]
     Dosage: CONT.

REACTIONS (1)
  - Oedema peripheral [Unknown]
